FAERS Safety Report 7744433-4 (Version None)
Quarter: 2011Q3

REPORT INFORMATION
  Report Type: 
  Country: None (occurrence: None)
  Receive Date: 20110909
  Receipt Date: 20110825
  Transmission Date: 20111222
  Serious: Yes (Hospitalization, Other)
  Sender: FDA-Public Use
  Company Number: 2011MA012627

PATIENT
  Sex: Male

DRUGS (20)
  1. MONOPRIL [Concomitant]
  2. IMIPRAMINE HCL [Concomitant]
  3. COUMADIN [Concomitant]
  4. ALPRAZOLAM [Concomitant]
  5. CODEINE-GUAIFENESIN [Concomitant]
  6. KERLONE [Concomitant]
  7. PRILOSEC [Concomitant]
  8. MIRTAZAPINE [Concomitant]
  9. TRICOR [Concomitant]
  10. NORTRIPTYLINE HCL [Concomitant]
  11. DIGOXIN [Suspect]
     Indication: HEART RATE IRREGULAR
     Dosage: 0.375 MG;PO
     Route: 048
     Dates: start: 19980101, end: 20080325
  12. LOTRISONE [Concomitant]
  13. GEMFIBROZIL [Concomitant]
  14. LANOXIN [Concomitant]
  15. LASIX [Concomitant]
  16. ZOLPIDEM [Concomitant]
  17. ASPIRIN [Concomitant]
  18. NIASPAN [Concomitant]
  19. ZOCOR [Concomitant]
  20. VITAMIN E [Concomitant]

REACTIONS (63)
  - ISCHAEMIC CARDIOMYOPATHY [None]
  - ELECTROCARDIOGRAM T WAVE ABNORMAL [None]
  - WEIGHT DECREASED [None]
  - UPPER-AIRWAY COUGH SYNDROME [None]
  - GASTRIC DISORDER [None]
  - LENTIGO [None]
  - MALFORMATION VENOUS [None]
  - PERIPHERAL COLDNESS [None]
  - DIARRHOEA [None]
  - PULMONARY HYPERTENSION [None]
  - CORONARY ARTERY DISEASE [None]
  - DECREASED APPETITE [None]
  - PRODUCTIVE COUGH [None]
  - EYE PRURITUS [None]
  - NAUSEA [None]
  - EMOTIONAL DISORDER [None]
  - FLATULENCE [None]
  - GASTROENTERITIS VIRAL [None]
  - INCISION SITE PAIN [None]
  - ACTIVITIES OF DAILY LIVING IMPAIRED [None]
  - SUBDURAL HAEMATOMA [None]
  - GLUCOSE TOLERANCE IMPAIRED [None]
  - SINUS HEADACHE [None]
  - ENDODONTIC PROCEDURE [None]
  - DIZZINESS POSTURAL [None]
  - CHEST DISCOMFORT [None]
  - DYSPNOEA [None]
  - ABDOMINAL HERNIA [None]
  - HYPERLIPIDAEMIA [None]
  - VENTRICULAR TACHYCARDIA [None]
  - NASAL DISCOMFORT [None]
  - HAEMANGIOMA [None]
  - GALLBLADDER DISORDER [None]
  - MESENTERIC VASCULAR INSUFFICIENCY [None]
  - CARDIAC FAILURE [None]
  - OSTEOARTHRITIS [None]
  - ABDOMINAL PAIN UPPER [None]
  - HAEMATOCRIT INCREASED [None]
  - BUNDLE BRANCH BLOCK LEFT [None]
  - ATRIAL FIBRILLATION [None]
  - SINUS CONGESTION [None]
  - ADENOMYOSIS [None]
  - ARTERIOSCLEROSIS [None]
  - ATRIAL FLUTTER [None]
  - CARDIAC MURMUR [None]
  - DEPRESSION [None]
  - RENAL CYST [None]
  - ASTHENIA [None]
  - WHITE BLOOD CELL COUNT INCREASED [None]
  - ERUCTATION [None]
  - UPPER RESPIRATORY TRACT INFECTION [None]
  - CHEST PAIN [None]
  - INCISIONAL HERNIA [None]
  - MITRAL VALVE INCOMPETENCE [None]
  - TRICUSPID VALVE INCOMPETENCE [None]
  - CONDUCTION DISORDER [None]
  - INSOMNIA [None]
  - RHINORRHOEA [None]
  - PAIN [None]
  - HEPATIC LESION [None]
  - FATIGUE [None]
  - ABDOMINAL DISCOMFORT [None]
  - INFECTION [None]
